FAERS Safety Report 13780683 (Version 3)
Quarter: 2019Q1

REPORT INFORMATION
  Report Type: Report from Study
  Country: None (occurrence: BR)
  Receive Date: 20170724
  Receipt Date: 20190220
  Transmission Date: 20190417
  Serious: Yes (Other)
  Sender: FDA-Public Use
  Company Number: BR-ABBVIE-17K-020-2043170-00

PATIENT
  Age: 73 Year
  Sex: Female
  Weight: 46 kg

DRUGS (8)
  1. ACETYLSALICYLIC ACID [Concomitant]
     Active Substance: ASPIRIN
     Indication: CARDIAC DISORDER
  2. SOMALIUM [Concomitant]
     Active Substance: BROMAZEPAM
     Indication: DEPRESSION
  3. HUMIRA [Suspect]
     Active Substance: ADALIMUMAB
     Indication: RHEUMATOID ARTHRITIS
     Route: 058
     Dates: start: 20160118
  4. HUMIRA [Suspect]
     Active Substance: ADALIMUMAB
     Route: 058
  5. LABIRIN [Concomitant]
     Active Substance: BETAHISTINE
     Indication: LABYRINTHITIS
  6. VALSARTAN. [Concomitant]
     Active Substance: VALSARTAN
     Indication: HYPERTENSION
  7. VENALOT [Concomitant]
     Active Substance: COUMARIN\TROXERUTIN
     Indication: VARICOSE VEIN
  8. VENALOT [Concomitant]
     Active Substance: COUMARIN\TROXERUTIN
     Indication: POOR PERIPHERAL CIRCULATION

REACTIONS (23)
  - Dyslipidaemia [Unknown]
  - Abdominal pain [Not Recovered/Not Resolved]
  - Musculoskeletal stiffness [Unknown]
  - Pain in extremity [Recovered/Resolved]
  - Injection site swelling [Recovered/Resolved]
  - Back pain [Not Recovered/Not Resolved]
  - Pain in extremity [Unknown]
  - Varicose vein [Unknown]
  - Back pain [Recovered/Resolved]
  - Arthralgia [Unknown]
  - Pain [Recovered/Resolved]
  - Gait disturbance [Unknown]
  - Cardiac disorder [Unknown]
  - Peripheral swelling [Not Recovered/Not Resolved]
  - Injection site pain [Recovered/Resolved]
  - Blood pressure increased [Not Recovered/Not Resolved]
  - Injection site pain [Unknown]
  - Osteoporosis [Not Recovered/Not Resolved]
  - Chest pain [Recovered/Resolved]
  - Fatigue [Recovered/Resolved]
  - Dyspnoea [Recovered/Resolved]
  - Arteriosclerosis coronary artery [Recovering/Resolving]
  - Neck pain [Recovered/Resolved]

NARRATIVE: CASE EVENT DATE: 201702
